FAERS Safety Report 4817158-2 (Version None)
Quarter: 2005Q3

REPORT INFORMATION
  Report Type: 
  Country: None (occurrence: None)
  Receive Date: 20050929
  Receipt Date: 20050803
  Transmission Date: 20060218
  Serious: No
  Sender: FDA-Public Use
  Company Number: 05P-163-0302480-00

PATIENT
  Age: 66 Year
  Sex: Female
  Weight: 55.3388 kg

DRUGS (15)
  1. HUMIRA [Suspect]
     Indication: RHEUMATOID ARTHRITIS
     Dosage: 40 MG, 1 IN 2 WK, SUBCUTANEOUS
     Route: 058
     Dates: start: 20040101, end: 20050505
  2. PREDNISONE [Concomitant]
  3. METHOTREXATE [Concomitant]
  4. FOLIC ACID [Concomitant]
  5. TIMOLOL MALEATE [Concomitant]
  6. METFORMIN HCL [Concomitant]
  7. PRINZIDE [Concomitant]
  8. BAYER BABY ASPIRIN [Concomitant]
  9. FLUOXETINE HYDROCHLORIDE [Concomitant]
  10. HYDROCODONE [Concomitant]
  11. ESTRATEST H.S. [Concomitant]
  12. CELECOXIB [Concomitant]
  13. ESOMEPRAZOLE [Concomitant]
  14. TRAZODONE HCL [Concomitant]
  15. CLONAZEPAM [Concomitant]

REACTIONS (2)
  - BLISTER [None]
  - SKIN INFECTION [None]
